FAERS Safety Report 18328336 (Version 4)
Quarter: 2021Q1

REPORT INFORMATION
  Report Type: Spontaneous
  Country: JP (occurrence: JP)
  Receive Date: 20200930
  Receipt Date: 20210208
  Transmission Date: 20210419
  Serious: Yes (Hospitalization)
  Sender: FDA-Public Use
  Company Number: JP-TAIHO ONCOLOGY  INC-JPTT200303

PATIENT
  Age: 65 Year
  Sex: Male
  Weight: 46.5 kg

DRUGS (7)
  1. LONSURF [Suspect]
     Active Substance: TIPIRACIL HYDROCHLORIDE\TRIFLURIDINE
     Dosage: DETAILS NOT REPORTED
     Route: 048
     Dates: start: 20200804, end: 20200920
  2. CANAGLU [Concomitant]
     Active Substance: CANAGLIFLOZIN
     Dosage: DETAILS NOT REPORTED
     Route: 048
     Dates: end: 20200928
  3. LONSURF [Suspect]
     Active Substance: TIPIRACIL HYDROCHLORIDE\TRIFLURIDINE
     Dosage: DETAILS NOT REPORTED
     Route: 048
     Dates: start: 20200616, end: 20200628
  4. VALSARTAN. [Concomitant]
     Active Substance: VALSARTAN
     Dosage: DETAILS NOT REPORTED
     Route: 048
     Dates: end: 20200928
  5. TENELIA [Concomitant]
     Active Substance: TENELIGLIPTIN
     Dosage: DETAILS NOT REPORTED
     Route: 048
     Dates: end: 20200928
  6. LONSURF [Suspect]
     Active Substance: TIPIRACIL HYDROCHLORIDE\TRIFLURIDINE
     Indication: SMALL INTESTINE CARCINOMA METASTATIC
     Dosage: DETAILS NOT REPORTED
     Route: 048
     Dates: start: 20200514, end: 20200525
  7. ELIQUIS [Concomitant]
     Active Substance: APIXABAN
     Dosage: DETAILS NOT REPORTED
     Route: 048
     Dates: end: 20200928

REACTIONS (3)
  - Intestinal perforation [Recovered/Resolved]
  - Neutrophil count decreased [Recovered/Resolved]
  - Intentional product use issue [Unknown]

NARRATIVE: CASE EVENT DATE: 20200514
